FAERS Safety Report 8901972 (Version 2)
Quarter: 2013Q1

REPORT INFORMATION
  Report Type: Report from Study
  Country: BR (occurrence: BR)
  Receive Date: 20121112
  Receipt Date: 20130111
  Transmission Date: 20140127
  Serious: Yes (Other)
  Sender: FDA-Public Use
  Company Number: BR-ASTRAZENECA-2012SE84452

PATIENT
  Age: 670 Month
  Sex: Male
  Weight: 88 kg

DRUGS (2)
  1. CRESTOR [Suspect]
     Indication: DYSLIPIDAEMIA
     Route: 048
     Dates: start: 2008, end: 201210
  2. CRESTOR [Suspect]
     Indication: DYSLIPIDAEMIA
     Route: 048
     Dates: start: 201210

REACTIONS (2)
  - Coronary artery occlusion [Unknown]
  - Arteriosclerosis coronary artery [Not Recovered/Not Resolved]
